FAERS Safety Report 21882579 (Version 1)
Quarter: 2023Q1

REPORT INFORMATION
  Report Type: Spontaneous
  Country: US (occurrence: US)
  Receive Date: 20230119
  Receipt Date: 20230119
  Transmission Date: 20230417
  Serious: Yes (Other)
  Sender: FDA-Public Use
  Company Number: US-SUN PHARMACEUTICAL INDUSTRIES LTD-2023R1-373385

PATIENT
  Sex: Male

DRUGS (1)
  1. ILUMYA [Suspect]
     Active Substance: TILDRAKIZUMAB-ASMN
     Indication: Product used for unknown indication
     Dosage: 100 MILLIGRAM PER MILLILITRE, AT WEEK 0 AND 4 THEN EVERY 12 WEEKS
     Route: 058

REACTIONS (2)
  - Apparent death [Unknown]
  - Therapy cessation [Unknown]
